FAERS Safety Report 5274686-6 (Version None)
Quarter: 2007Q1

REPORT INFORMATION
  Report Type: 
  Country: None (occurrence: None)
  Receive Date: 20070320
  Receipt Date: 20070307
  Transmission Date: 20070707
  Serious: Yes (Death)
  Sender: FDA-Public Use
  Company Number: 2006BI018181

PATIENT
  Sex: Female

DRUGS (15)
  1. AVONEX [Suspect]
     Indication: MULTIPLE SCLEROSIS
     Dosage: 30 UG; QW; IM
     Route: 030
     Dates: start: 20030501, end: 20050805
  2. ASPIRIN [Concomitant]
  3. INSULIN [Concomitant]
  4. BACLOFEN [Concomitant]
  5. CLONIDINE [Concomitant]
  6. HUMALOG [Concomitant]
  7. LANTUS [Concomitant]
  8. LEXOXYL [Concomitant]
  9. LIPITOR [Concomitant]
  10. LISINOPRIL [Concomitant]
  11. MAXZIDE [Concomitant]
  12. SOLU-MEDROL [Concomitant]
  13. AMBIEN [Concomitant]
  14. DOCUSATE SODIUM [Concomitant]
  15. ZANAFLEX [Concomitant]

REACTIONS (1)
  - UNEVALUABLE EVENT [None]
